FAERS Safety Report 9310556 (Version 1)
Quarter: 2013Q2

REPORT INFORMATION
  Report Type: Report from Study
  Country: US (occurrence: US)
  Receive Date: 20130527
  Receipt Date: 20130527
  Transmission Date: 20140414
  Serious: Yes (Other)
  Sender: FDA-Public Use
  Company Number: PHEH2013US000830

PATIENT
  Age: 76 Year
  Sex: Female

DRUGS (4)
  1. TASIGNA [Suspect]
     Indication: CHRONIC MYELOID LEUKAEMIA (IN REMISSION)
     Dosage: 150 MG, UNK
     Route: 048
     Dates: start: 20110719
  2. TASIGNA [Suspect]
     Dosage: 300 MG, Q12H
     Route: 048
     Dates: start: 20120128
  3. ISOSORBIDE DINITRATE [Concomitant]
     Dosage: 15 MG, DAILY
  4. DILTIAZEM [Concomitant]
     Indication: HYPERTENSION
     Dosage: 180 MG, DAILY

REACTIONS (5)
  - Neuropathy peripheral [Recovered/Resolved]
  - Hypoaesthesia [Recovered/Resolved]
  - Joint stiffness [Recovered/Resolved]
  - Muscle spasms [Recovered/Resolved]
  - Insomnia [Recovered/Resolved]
